FAERS Safety Report 4353093-4 (Version None)
Quarter: 2004Q2

REPORT INFORMATION
  Report Type: 
  Country: None (occurrence: None)
  Receive Date: 20040430
  Receipt Date: 20040224
  Transmission Date: 20050107
  Serious: No
  Sender: FDA-Public Use
  Company Number: 204915

PATIENT
  Age: 50 Year
  Sex: Female

DRUGS (9)
  1. XOLAIR [Suspect]
     Indication: ASTHMA
     Dosage: 300 MG, Q2W, INTRAMUSCULAR
     Route: 030
     Dates: start: 20031031
  2. SYNTHROID [Concomitant]
  3. SINGULAIR [Concomitant]
  4. ADVAIR DISKUS (SALMETEROL XINAFOATE, FLUTICASONE PROPIONATE) [Concomitant]
  5. FLONASE [Concomitant]
  6. ZYRTEC [Concomitant]
  7. EPIPEN (EPINEPHRINE) [Concomitant]
  8. ALBUTEROL (ALBUTEROL SULFATE, ALBUTEROL) [Concomitant]
  9. PROZAC [Concomitant]

REACTIONS (1)
  - PRURITUS GENERALISED [None]
